FAERS Safety Report 24715791 (Version 1)
Quarter: 2024Q4

REPORT INFORMATION
  Report Type: Report from Study
  Country: RU (occurrence: RU)
  Receive Date: 20241210
  Receipt Date: 20241210
  Transmission Date: 20250115
  Serious: Yes (Other)
  Sender: ROCHE
  Company Number: RU-ROCHE-10000133606

PATIENT

DRUGS (30)
  1. CEFTRIAXONE [Suspect]
     Active Substance: CEFTRIAXONE
     Indication: COVID-19
     Route: 065
  2. TOCILIZUMAB [Suspect]
     Active Substance: TOCILIZUMAB
     Indication: COVID-19
     Route: 065
  3. OMEPRAZOLE [Suspect]
     Active Substance: OMEPRAZOLE
     Indication: COVID-19
     Route: 065
  4. ACETAMINOPHEN [Suspect]
     Active Substance: ACETAMINOPHEN
     Indication: COVID-19
     Route: 065
  5. ATORVASTATIN [Suspect]
     Active Substance: ATORVASTATIN
     Indication: COVID-19
     Route: 065
  6. LEVOFLOXACIN [Suspect]
     Active Substance: LEVOFLOXACIN
     Indication: COVID-19
     Route: 065
  7. FAVIPIRAVIR [Suspect]
     Active Substance: FAVIPIRAVIR
     Indication: COVID-19
     Route: 065
  8. AMOXICILLIN [Suspect]
     Active Substance: AMOXICILLIN
     Indication: COVID-19
     Route: 065
  9. CLAVULANIC ACID [Suspect]
     Active Substance: CLAVULANIC ACID
     Indication: COVID-19
     Route: 065
  10. LOPINAVIR [Suspect]
     Active Substance: LOPINAVIR
     Indication: COVID-19
     Route: 065
  11. RITONAVIR [Suspect]
     Active Substance: RITONAVIR
     Indication: COVID-19
     Route: 065
  12. CEFOPERAZONE [Suspect]
     Active Substance: CEFOPERAZONE
     Indication: COVID-19
     Route: 065
  13. SULBACTAM [Suspect]
     Active Substance: SULBACTAM
     Indication: COVID-19
     Route: 065
  14. COTRIMOXAZOLE [Suspect]
     Active Substance: SULFAMETHOXAZOLE\TRIMETHOPRIM
     Indication: COVID-19
     Route: 065
  15. AZITHROMYCIN [Suspect]
     Active Substance: AZITHROMYCIN
     Indication: COVID-19
     Route: 065
  16. AMIODARONE [Suspect]
     Active Substance: AMIODARONE
     Indication: COVID-19
     Route: 065
  17. LINEZOLID [Suspect]
     Active Substance: LINEZOLID
     Indication: COVID-19
     Route: 065
  18. LISINOPRIL [Suspect]
     Active Substance: LISINOPRIL
     Indication: COVID-19
     Route: 065
  19. NIFEDIPINE [Suspect]
     Active Substance: NIFEDIPINE
     Indication: COVID-19
     Route: 065
  20. NIFEDIPINE [Suspect]
     Active Substance: NIFEDIPINE
     Indication: COVID-19
     Route: 065
  21. FLUCONAZOLE [Suspect]
     Active Substance: FLUCONAZOLE
     Indication: COVID-19
     Route: 065
  22. CYCLOPHOSPHAMIDE [Suspect]
     Active Substance: CYCLOPHOSPHAMIDE
     Indication: COVID-19
     Route: 065
  23. CIPROFLOXACIN [Suspect]
     Active Substance: CIPROFLOXACIN
     Indication: COVID-19
     Route: 065
  24. ENALAPRIL [Suspect]
     Active Substance: ENALAPRIL
     Indication: COVID-19
     Route: 065
  25. KETOPROFEN [Suspect]
     Active Substance: KETOPROFEN
     Indication: COVID-19
     Route: 065
  26. MEROPENEM [Suspect]
     Active Substance: MEROPENEM
     Indication: COVID-19
     Route: 065
  27. METOPROLOL [Suspect]
     Active Substance: METOPROLOL
     Indication: COVID-19
     Route: 065
  28. REMDESIVIR [Suspect]
     Active Substance: REMDESIVIR
     Indication: COVID-19
     Route: 065
  29. CEFOTAXIME [Suspect]
     Active Substance: CEFOTAXIME SODIUM
     Indication: COVID-19
     Route: 065
  30. CEFTAZIDIME [Suspect]
     Active Substance: CEFTAZIDIME
     Indication: COVID-19
     Route: 065

REACTIONS (2)
  - Drug-induced liver injury [Unknown]
  - Off label use [Unknown]
